FAERS Safety Report 6280179-X (Version None)
Quarter: 2009Q3

REPORT INFORMATION
  Report Type: 
  Country: None (occurrence: None)
  Receive Date: 20090723
  Receipt Date: 20090709
  Transmission Date: 20100115
  Serious: Yes (Life-Threatening, Hospitalization)
  Sender: FDA-Public Use
  Company Number: CN-GENENTECH-287133

PATIENT
  Sex: Male

DRUGS (13)
  1. BLINDED BEVACIZUMAB [Suspect]
     Indication: GASTRIC CANCER
     Dosage: UNK
     Route: 042
     Dates: start: 20090706, end: 20090713
  2. BLINDED CAPECITABINE [Suspect]
     Indication: GASTRIC CANCER
     Dosage: UNK
     Route: 042
     Dates: start: 20090706, end: 20090713
  3. CISPLATIN [Suspect]
     Indication: GASTRIC CANCER
     Dosage: UNK
     Route: 042
     Dates: start: 20090706, end: 20090713
  4. BLINDED PLACEBO [Suspect]
     Indication: GASTRIC CANCER
     Dosage: UNK
     Route: 042
     Dates: start: 20090706, end: 20090713
  5. CAPECITABINE [Suspect]
     Indication: GASTRIC CANCER
     Dosage: 1500 MG/M2, BID
     Route: 048
     Dates: start: 20090706, end: 20090713
  6. CISPLATIN [Suspect]
     Indication: GASTRIC CANCER
     Dosage: 80 MG/M2, Q3W
     Route: 042
     Dates: start: 20090706, end: 20090713
  7. OMEPRAZOLE [Concomitant]
     Indication: DRUG USE FOR UNKNOWN INDICATION
     Dosage: UNK
     Dates: start: 20090708
  8. AZASETRON [Concomitant]
     Indication: DRUG USE FOR UNKNOWN INDICATION
     Dosage: UNK
     Dates: start: 20090708, end: 20090708
  9. GLUTATHIONE [Concomitant]
     Indication: DRUG USE FOR UNKNOWN INDICATION
     Dosage: UNK
     Dates: start: 20090708, end: 20090708
  10. PHOSPHATIDYLCHOLINE [Concomitant]
     Indication: DRUG USE FOR UNKNOWN INDICATION
     Dosage: UNK
     Dates: start: 20090708, end: 20090708
  11. CEFOTIAM [Concomitant]
     Indication: DRUG USE FOR UNKNOWN INDICATION
     Dosage: UNK
     Dates: start: 20090708, end: 20090708
  12. AMINO ACID INJ [Concomitant]
     Indication: DRUG USE FOR UNKNOWN INDICATION
     Dosage: UNK
     Dates: start: 20090702
  13. FAT EMULSION [Concomitant]
     Indication: DRUG USE FOR UNKNOWN INDICATION
     Dosage: UNK
     Dates: start: 20090712

REACTIONS (3)
  - GASTRIC FISTULA [None]
  - PLEURAL FISTULA [None]
  - PNEUMOTHORAX [None]
